FAERS Safety Report 9219162 (Version 2)
Quarter: 2013Q4

REPORT INFORMATION
  Report Type: Report from Study
  Country: BR (occurrence: BR)
  Receive Date: 20130409
  Receipt Date: 20131205
  Transmission Date: 20140711
  Serious: Yes (Other)
  Sender: FDA-Public Use
  Company Number: BR-ELI_LILLY_AND_COMPANY-BR201303009792

PATIENT
  Age: 81 Year
  Sex: Female
  Weight: 48 kg

DRUGS (2)
  1. TERIPARATIDE [Suspect]
     Indication: OSTEOPOROSIS
     Dosage: UNK, QD
     Route: 058
     Dates: start: 2009, end: 201211
  2. CALCIUM PHOSPHATE W/CYANOCOBALAMIN [Concomitant]
     Dosage: UNK, UNKNOWN
     Route: 065

REACTIONS (7)
  - Femur fracture [Recovered/Resolved]
  - Device related infection [Recovered/Resolved]
  - Skin infection [Recovered/Resolved]
  - Deafness [Not Recovered/Not Resolved]
  - Fall [Not Recovered/Not Resolved]
  - Forearm fracture [Recovered/Resolved]
  - Gait disturbance [Not Recovered/Not Resolved]
